FAERS Safety Report 18105346 (Version 1)
Quarter: 2020Q3

REPORT INFORMATION
  Report Type: Spontaneous
  Country: CA (occurrence: CA)
  Receive Date: 20200804
  Receipt Date: 20200804
  Transmission Date: 20201103
  Serious: Yes (Other)
  Sender: FDA-Public Use
  Company Number: CA-SA-2020SA197730

PATIENT

DRUGS (35)
  1. DYMISTA [Concomitant]
     Active Substance: AZELASTINE HYDROCHLORIDE\FLUTICASONE PROPIONATE
     Dosage: UNK
  2. FUROSEMIDE. [Concomitant]
     Active Substance: FUROSEMIDE
     Dosage: UNK
  3. GENTAMICIN. [Concomitant]
     Active Substance: GENTAMICIN
  4. PHENYLEPHRINE HCL [Concomitant]
     Active Substance: PHENYLEPHRINE HYDROCHLORIDE
  5. TAZOCIN [Concomitant]
     Active Substance: PIPERACILLIN SODIUM\TAZOBACTAM SODIUM
     Route: 042
  6. ACYCLOVIR [ACICLOVIR] [Concomitant]
     Active Substance: ACYCLOVIR
     Dosage: UNK
  7. AMIODARONE [Concomitant]
     Active Substance: AMIODARONE
  8. CHLORHEXIDINE [Concomitant]
     Active Substance: CHLORHEXIDINE
  9. EMPRACET [PARACETAMOL] [Concomitant]
     Active Substance: ACETAMINOPHEN
  10. HUMULIN R [Concomitant]
     Active Substance: INSULIN HUMAN
  11. MILRINONE [Concomitant]
     Active Substance: MILRINONE
     Dosage: LIQUID
     Route: 042
  12. POTASSIUM [Concomitant]
     Active Substance: POTASSIUM
     Route: 042
  13. VASOPRESSIN. [Concomitant]
     Active Substance: VASOPRESSIN
  14. RIFAMPICIN [Suspect]
     Active Substance: RIFAMPIN
     Indication: POST PROCEDURAL FEVER
     Dosage: 600 MG, QD
  15. MEROPENEM. [Suspect]
     Active Substance: MEROPENEM
     Indication: POST PROCEDURAL FEVER
     Dosage: 1 G, BID
     Route: 042
  16. AMPICILLIN [Concomitant]
     Active Substance: AMPICILLIN
  17. CLOTRIMAZOLE. [Concomitant]
     Active Substance: CLOTRIMAZOLE
  18. METOPROLOL. [Concomitant]
     Active Substance: METOPROLOL
  19. PIPERACILLIN AND TAZOBACTAM [Concomitant]
     Active Substance: PIPERACILLIN SODIUM\TAZOBACTAM SODIUM
     Route: 042
  20. PROPOFOL. [Concomitant]
     Active Substance: PROPOFOL
  21. CHOLESTYRAMINE. [Concomitant]
     Active Substance: CHOLESTYRAMINE
  22. CIALIS [Concomitant]
     Active Substance: TADALAFIL
  23. DEXTROSE. [Concomitant]
     Active Substance: DEXTROSE
     Route: 042
  24. HEPARIN CALCIUM [Concomitant]
     Active Substance: HEPARIN CALCIUM
  25. NOREPINEPHRINE. [Concomitant]
     Active Substance: NOREPINEPHRINE
     Dosage: LIQUID
     Route: 042
  26. VANCOMYCIN [Concomitant]
     Active Substance: VANCOMYCIN
  27. CLONIDINE. [Concomitant]
     Active Substance: CLONIDINE
  28. CLOXACILLIN [Concomitant]
     Active Substance: CLOXACILLIN
     Route: 042
  29. HUMULIN N [Concomitant]
     Active Substance: INSULIN HUMAN
     Route: 058
  30. LANSOPRAZOLE. [Concomitant]
     Active Substance: LANSOPRAZOLE
  31. ACETAMINOPHEN. [Concomitant]
     Active Substance: ACETAMINOPHEN
  32. CEFTRIAXONE [CEFTRIAXONE SODIUM] [Concomitant]
     Active Substance: CEFTRIAXONE SODIUM
     Route: 030
  33. COUMADIN [Concomitant]
     Active Substance: WARFARIN SODIUM
     Dosage: UNK
  34. HYDROMORPHONE [Concomitant]
     Active Substance: HYDROMORPHONE
  35. LEVAQUIN [Concomitant]
     Active Substance: LEVOFLOXACIN

REACTIONS (2)
  - Neutropenia [Recovered/Resolved]
  - Hepatic enzyme increased [Recovered/Resolved]
